FAERS Safety Report 14208339 (Version 1)
Quarter: 2017Q4

REPORT INFORMATION
  Report Type: Spontaneous
  Country: CH (occurrence: CH)
  Receive Date: 20171121
  Receipt Date: 20171121
  Transmission Date: 20180321
  Serious: Yes (Hospitalization, Other)
  Sender: FDA-Public Use
  Company Number: PHHY2017CH046955

PATIENT
  Sex: Male

DRUGS (2)
  1. COSENTYX [Suspect]
     Active Substance: SECUKINUMAB
     Indication: PRODUCT USED FOR UNKNOWN INDICATION
     Dosage: 150 MG, UNK
     Route: 065
  2. COSENTYX [Suspect]
     Active Substance: SECUKINUMAB
     Dosage: 150 MG, UNK
     Route: 065
     Dates: start: 20170411

REACTIONS (6)
  - Pyrexia [Unknown]
  - Pleural effusion [Unknown]
  - Varicella [Unknown]
  - Varicella zoster pneumonia [Recovered/Resolved]
  - Inflammation [Unknown]
  - Productive cough [Unknown]

NARRATIVE: CASE EVENT DATE: 20170322
